FAERS Safety Report 7386790-7 (Version None)
Quarter: 2011Q1

REPORT INFORMATION
  Report Type: 
  Country: None (occurrence: None)
  Receive Date: 20110331
  Receipt Date: 20110322
  Transmission Date: 20110831
  Serious: Yes (Hospitalization)
  Sender: FDA-Public Use
  Company Number: JP-ASTRAZENECA-2011SE13410

PATIENT
  Age: 70 Year
  Sex: Male

DRUGS (4)
  1. CASODEX [Suspect]
     Route: 048
     Dates: start: 20110311, end: 20110314
  2. DRUG FOR BONE SCINTIGRAPHY [Suspect]
     Dates: start: 20110308
  3. CASODEX [Suspect]
     Indication: PROSTATE CANCER
     Route: 048
     Dates: start: 20110304, end: 20110308
  4. CRAVIT [Concomitant]
     Dosage: DOSE UNKNOWN
     Route: 048
     Dates: start: 20110304, end: 20110307

REACTIONS (1)
  - EPIGLOTTIC OEDEMA [None]
